FAERS Safety Report 5033874-4 (Version None)
Quarter: 2006Q2

REPORT INFORMATION
  Report Type: 
  Country: None (occurrence: None)
  Receive Date: 20060621
  Receipt Date: 20060607
  Transmission Date: 20061013
  Serious: Yes (Hospitalization, Other)
  Sender: FDA-Public Use
  Company Number: US200606001998

PATIENT
  Age: 62 Year
  Sex: Male

DRUGS (4)
  1. GEMZAR [Suspect]
     Indication: NON-SMALL CELL LUNG CANCER
     Dosage: 1000 MG/M2,
     Dates: start: 20060101
  2. CARBOPLATIN [Concomitant]
  3. DECADRON [Concomitant]
  4. ALOXIPRIN (ALOXIPRIN) [Concomitant]

REACTIONS (7)
  - ARTHRITIS [None]
  - CYANOSIS [None]
  - FLUID RETENTION [None]
  - GENERALISED OEDEMA [None]
  - HEPATIC ENZYME INCREASED [None]
  - PLATELET COUNT DECREASED [None]
  - RENAL FAILURE [None]
